FAERS Safety Report 25749815 (Version 1)
Quarter: 2025Q3

REPORT INFORMATION
  Report Type: Report from Study
  Country: PK (occurrence: PK)
  Receive Date: 20250902
  Receipt Date: 20250902
  Transmission Date: 20251020
  Serious: Yes (Other)
  Sender: ROCHE
  Company Number: PK-ROCHE-10000169864

PATIENT
  Age: 65 Year
  Sex: Female

DRUGS (5)
  1. AVASTIN [Suspect]
     Active Substance: BEVACIZUMAB
     Indication: Colorectal cancer metastatic
     Dosage: FREQUENCY:3 WEEK
     Route: 042
     Dates: start: 20240726, end: 20250604
  2. AVASTIN [Suspect]
     Active Substance: BEVACIZUMAB
     Route: 042
  3. AVASTIN [Suspect]
     Active Substance: BEVACIZUMAB
     Route: 042
  4. AVASTIN [Suspect]
     Active Substance: BEVACIZUMAB
     Route: 042
  5. AVASTIN [Suspect]
     Active Substance: BEVACIZUMAB
     Route: 042

REACTIONS (4)
  - Oedema [Unknown]
  - Surgery [Unknown]
  - Ill-defined disorder [Unknown]
  - Drug ineffective [Unknown]

NARRATIVE: CASE EVENT DATE: 20241220
